FAERS Safety Report 21053251 (Version 1)
Quarter: 2022Q3

REPORT INFORMATION
  Report Type: Report from Study
  Country: US (occurrence: US)
  Receive Date: 20220707
  Receipt Date: 20220707
  Transmission Date: 20221027
  Serious: Yes (Other)
  Sender: FDA-Public Use
  Company Number: US-BRISTOL-MYERS SQUIBB COMPANY-2022-066771

PATIENT

DRUGS (1)
  1. ELIQUIS [Suspect]
     Active Substance: APIXABAN
     Indication: Product used for unknown indication
     Dosage: HAVE BEEN TAKING THE MEDICATION EVERY OTHER DAY.
     Route: 065

REACTIONS (3)
  - Atrial fibrillation [Unknown]
  - Chest pain [Unknown]
  - Treatment noncompliance [Unknown]
